FAERS Safety Report 7498609-4 (Version None)
Quarter: 2011Q2

REPORT INFORMATION
  Report Type: 
  Country: None (occurrence: None)
  Receive Date: 20110524
  Receipt Date: 20110506
  Transmission Date: 20111010
  Serious: Yes (Other)
  Sender: FDA-Public Use
  Company Number: US-BAYER-201023509NA

PATIENT
  Age: 32 Year
  Sex: Female
  Weight: 56.689 kg

DRUGS (2)
  1. YASMIN [Suspect]
     Indication: ORAL CONTRACEPTION
     Route: 048
     Dates: start: 20080301, end: 20090301
  2. DROSPIRENONE AND ETHINYL ESTRADIOL [Suspect]
     Indication: ORAL CONTRACEPTION
     Route: 048
     Dates: start: 20080301, end: 20090301

REACTIONS (5)
  - MUSCULOSKELETAL DISCOMFORT [None]
  - ARTERY DISSECTION [None]
  - MUSCULAR WEAKNESS [None]
  - NECK PAIN [None]
  - CAROTID ARTERY DISSECTION [None]
